FAERS Safety Report 16187337 (Version 1)
Quarter: 2019Q2

REPORT INFORMATION
  Report Type: Spontaneous
  Country: GB (occurrence: GB)
  Receive Date: 20190412
  Receipt Date: 20190412
  Transmission Date: 20190711
  Serious: Yes (Disabling, Other)
  Sender: FDA-Public Use
  Company Number: GB-BRISTOL-MYERS SQUIBB COMPANY-BMS-2019-033637

PATIENT
  Age: 38 Year
  Sex: Female
  Weight: 65.31 kg

DRUGS (2)
  1. ETORICOXIB. [Concomitant]
     Active Substance: ETORICOXIB
     Indication: PRODUCT USED FOR UNKNOWN INDICATION
     Dosage: UNK
     Route: 065
  2. KENALOG [Suspect]
     Active Substance: TRIAMCINOLONE ACETONIDE
     Indication: ARTHRALGIA
     Dosage: 14MG/1MG
     Route: 014
     Dates: start: 20190215

REACTIONS (7)
  - Vomiting [Unknown]
  - Injection site pain [Not Recovered/Not Resolved]
  - Injection site swelling [Not Recovered/Not Resolved]
  - Muscular weakness [Unknown]
  - Infection [Unknown]
  - Abnormal loss of weight [Unknown]
  - Tremor [Unknown]

NARRATIVE: CASE EVENT DATE: 20190218
